FAERS Safety Report 5145932-4 (Version None)
Quarter: 2006Q4

REPORT INFORMATION
  Report Type: 
  Country: None (occurrence: None)
  Receive Date: 20061108
  Receipt Date: 20061101
  Transmission Date: 20070319
  Serious: Yes (Other)
  Sender: FDA-Public Use
  Company Number: 2006UW21185

PATIENT
  Age: 52 Year
  Sex: Male

DRUGS (20)
  1. LOSEC [Suspect]
     Route: 048
  2. CLAFORAN [Suspect]
     Dosage: 1 GRAM 3 TIMES DAILY
     Route: 042
  3. A.C. + C. [Concomitant]
  4. ACETAMINOPHEN [Concomitant]
  5. BENZOCAINE [Concomitant]
  6. BISACODYL [Concomitant]
  7. CLINDAMYCIN [Concomitant]
  8. CLOXACILLIN SODIUM [Concomitant]
  9. DIMENHYDRINATE [Concomitant]
  10. DOCUSATE [Concomitant]
  11. SODIUM PHOSPHATES [Concomitant]
  12. HUMULIN N [Concomitant]
  13. HUMULIN 70/30 [Concomitant]
  14. LORAZEPAM [Concomitant]
  15. MAGNESIUM SULFATE [Concomitant]
  16. MORPHINE [Concomitant]
  17. PEGILYTE [Concomitant]
  18. POTASSIUM CHLORIDE [Concomitant]
  19. RANITIDINE [Concomitant]
  20. SCOPOLAMINE [Concomitant]

REACTIONS (4)
  - NEUTROPENIA [None]
  - PANCYTOPENIA [None]
  - RETICULOCYTOSIS [None]
  - THROMBOCYTOPENIA [None]
